FAERS Safety Report 21809059 (Version 2)
Quarter: 2023Q1

REPORT INFORMATION
  Report Type: Report from Study
  Country: US (occurrence: None)
  Receive Date: 20230103
  Receipt Date: 20230219
  Transmission Date: 20230418
  Serious: Yes (Other)
  Sender: FDA-Public Use
  Company Number: US-CDN-EMD Serono,a division of EMD Inc.-9375602

PATIENT
  Age: 43 Year
  Sex: Female

DRUGS (1)
  1. REBIF [Suspect]
     Active Substance: INTERFERON BETA-1A
     Indication: Multiple sclerosis
     Route: 058
     Dates: start: 20030526, end: 20220601

REACTIONS (2)
  - Atrial fibrillation [Unknown]
  - Surgery [Unknown]

NARRATIVE: CASE EVENT DATE: 20070101
